FAERS Safety Report 25851057 (Version 1)
Quarter: 2025Q3

REPORT INFORMATION
  Report Type: Spontaneous
  Country: SG (occurrence: SG)
  Receive Date: 20250926
  Receipt Date: 20250926
  Transmission Date: 20251021
  Serious: Yes (Death, Other)
  Sender: AMGEN
  Company Number: SG-AMGEN-SGPSP2025186685

PATIENT

DRUGS (5)
  1. ETANERCEPT [Suspect]
     Active Substance: ETANERCEPT
     Indication: Rheumatoid arthritis
     Route: 065
  2. ADALIMUMAB [Suspect]
     Active Substance: ADALIMUMAB
     Indication: Rheumatoid arthritis
     Route: 065
  3. CERTOLIZUMAB PEGOL [Suspect]
     Active Substance: CERTOLIZUMAB PEGOL
     Indication: Product used for unknown indication
     Route: 065
  4. INFLIXIMAB [Suspect]
     Active Substance: INFLIXIMAB
     Indication: Product used for unknown indication
     Route: 065
  5. GOLIMUMAB [Suspect]
     Active Substance: GOLIMUMAB
     Indication: Product used for unknown indication
     Route: 065

REACTIONS (18)
  - Death [Fatal]
  - Pharyngeal cancer [Unknown]
  - Lip and/or oral cavity cancer [Unknown]
  - Gastrointestinal carcinoma [Unknown]
  - Lung neoplasm malignant [Unknown]
  - Chondrosarcoma [Unknown]
  - Malignant melanoma [Unknown]
  - Soft tissue sarcoma [Unknown]
  - Breast cancer [Unknown]
  - Genital neoplasm malignant female [Unknown]
  - Genital cancer male [Unknown]
  - Urinary tract neoplasm [Unknown]
  - Central nervous system melanoma [Unknown]
  - Thyroid cancer [Unknown]
  - Neoplasm malignant [Unknown]
  - Neuroendocrine tumour [Unknown]
  - Haematopoietic neoplasm [Unknown]
  - Skin cancer [Unknown]
